FAERS Safety Report 14510147 (Version 1)
Quarter: 2018Q1

REPORT INFORMATION
  Report Type: Spontaneous
  Country: JP (occurrence: JP)
  Receive Date: 20180209
  Receipt Date: 20180209
  Transmission Date: 20180509
  Serious: Yes (Other)
  Sender: FDA-Public Use
  Company Number: JP-BAYER-2018-020694

PATIENT
  Age: 29 Year
  Sex: Female

DRUGS (1)
  1. EMPECID 100 MG [Suspect]
     Active Substance: CLOTRIMAZOLE
     Dosage: UNK
     Route: 067

REACTIONS (1)
  - Toxic epidermal necrolysis [Not Recovered/Not Resolved]
